FAERS Safety Report 4492517-9 (Version None)
Quarter: 2004Q4

REPORT INFORMATION
  Report Type: 
  Country: None (occurrence: None)
  Receive Date: 20041104
  Receipt Date: 20041027
  Transmission Date: 20050328
  Serious: Yes (Other)
  Sender: FDA-Public Use
  Company Number: PHBS2004CN14369

PATIENT
  Age: 5 Year
  Sex: Female

DRUGS (1)
  1. LAMISIL [Suspect]
     Indication: FUNGAL INFECTION
     Dosage: 62.5 MG/DAY
     Route: 048
     Dates: start: 20040818, end: 20040904

REACTIONS (3)
  - CHEST PAIN [None]
  - MENSTRUAL DISORDER [None]
  - PRECOCIOUS PUBERTY [None]
